FAERS Safety Report 15765331 (Version 2)
Quarter: 2019Q1

REPORT INFORMATION
  Report Type: Report from Study
  Country: BR (occurrence: BR)
  Receive Date: 20181227
  Receipt Date: 20190212
  Transmission Date: 20190417
  Serious: Yes (Other)
  Sender: FDA-Public Use
  Company Number: BR-SA-2018SA391750

PATIENT
  Age: 6 Year
  Sex: Male
  Weight: 25 kg

DRUGS (1)
  1. ALGLUCOSIDASE ALFA [Suspect]
     Active Substance: ALGLUCOSIDASE ALFA
     Indication: GLYCOGEN STORAGE DISEASE TYPE II
     Dosage: UNK; ONCE EVERY 15DAYS
     Route: 041
     Dates: start: 20121101

REACTIONS (8)
  - Oxygen saturation decreased [Recovered/Resolved]
  - Heart rate increased [Recovered/Resolved]
  - Pain [Recovered/Resolved]
  - Irritability [Recovered/Resolved]
  - Speech disorder [Recovered/Resolved]
  - Respiratory failure [Unknown]
  - Brain injury [Unknown]
  - Cardiac arrest [Unknown]

NARRATIVE: CASE EVENT DATE: 20190201
